FAERS Safety Report 10681696 (Version 2)
Quarter: 2014Q4

REPORT INFORMATION
  Report Type: Report from Study
  Country: BR (occurrence: BR)
  Receive Date: 20141230
  Receipt Date: 20141230
  Transmission Date: 20150529
  Serious: Yes (Death, Hospitalization, Other)
  Sender: FDA-Public Use
  Company Number: PHHY2014BR129892

PATIENT
  Age: 67 Year
  Sex: Female

DRUGS (5)
  1. AFINITOR [Suspect]
     Active Substance: EVEROLIMUS
     Dosage: 5 MG, UNK
     Route: 048
  2. HUMULIN N [Concomitant]
     Active Substance: INSULIN HUMAN
     Indication: BLOOD INSULIN
  3. AFINITOR [Suspect]
     Active Substance: EVEROLIMUS
     Indication: BREAST CANCER
     Dosage: 10 MG, UNK
     Dates: end: 20141001
  4. HUMULIN R [Concomitant]
     Active Substance: INSULIN HUMAN
     Indication: BLOOD INSULIN
  5. LOSARTAN [Concomitant]
     Active Substance: LOSARTAN
     Indication: HYPERTENSION
     Dosage: 12.5 MG, UNK

REACTIONS (10)
  - Cardiac disorder [Unknown]
  - Weight decreased [Unknown]
  - Tumour marker increased [Unknown]
  - Renal failure [Fatal]
  - Metastases to skin [Unknown]
  - Hypertension [Unknown]
  - Decreased appetite [Unknown]
  - Metastases to lung [Unknown]
  - Diabetes mellitus [Unknown]
  - Anaemia [Unknown]

NARRATIVE: CASE EVENT DATE: 20141001
